FAERS Safety Report 26083877 (Version 4)
Quarter: 2025Q4

REPORT INFORMATION
  Report Type: Spontaneous
  Country: EU (occurrence: EU)
  Receive Date: 20251124
  Receipt Date: 20251226
  Transmission Date: 20260118
  Serious: Yes (Hospitalization)
  Sender: SANDOZ
  Company Number: EU-002147023-NVSC2025FR178648

PATIENT
  Age: 62 Year
  Sex: Female
  Weight: 67 kg

DRUGS (3)
  1. PILOCARPINE HYDROCHLORIDE [Suspect]
     Active Substance: PILOCARPINE HYDROCHLORIDE
     Indication: Iridotomy
     Dosage: UNK (ONE DROP IN EVERY FIVE MINUTES IN THE RIGHT EYE FOR 30 MINUTES)
     Dates: start: 20251024, end: 20251024
  2. PILOCARPINE HYDROCHLORIDE [Suspect]
     Active Substance: PILOCARPINE HYDROCHLORIDE
     Dosage: UNK (ONE DROP IN EVERY FIVE THE LEFT EYE FOR THIRTY MINUTES) MINUTES IN)
     Dates: start: 20251031, end: 20251031
  3. INDOMETHACIN [Concomitant]
     Active Substance: INDOMETHACIN
     Indication: Iridectomy
     Dosage: UNK (ONE DROP THREE TIMES A DAY IN THE EYE- 3 DAYS BEFORE AND 7 DAYS AFTER)

REACTIONS (11)
  - Vestibular disorder [Unknown]
  - Abdominal pain [Recovering/Resolving]
  - Dizziness [Recovering/Resolving]
  - Vomiting [Recovering/Resolving]
  - Diarrhoea [Recovering/Resolving]
  - Headache [Recovering/Resolving]
  - Vestibular neuronitis [Recovering/Resolving]
  - Vertigo [Recovering/Resolving]
  - Diarrhoea [Recovering/Resolving]
  - Balance disorder [Recovering/Resolving]
  - Off label use [Unknown]

NARRATIVE: CASE EVENT DATE: 20251110
